FAERS Safety Report 18693956 (Version 4)
Quarter: 2021Q1

REPORT INFORMATION
  Report Type: Spontaneous
  Country: GB (occurrence: GB)
  Receive Date: 20210104
  Receipt Date: 20210128
  Transmission Date: 20210419
  Serious: Yes (Death, Other)
  Sender: FDA-Public Use
  Company Number: GB-MYLANLABS-2020M1106580

PATIENT
  Age: 55 Year
  Sex: Male

DRUGS (21)
  1. PREGABALIN. [Suspect]
     Active Substance: PREGABALIN
     Indication: PRODUCT USED FOR UNKNOWN INDICATION
     Dosage: 223000 NANOGRAM PER MILLLIITER (FEMORAL BLOOD)
  2. COCAINE [Suspect]
     Active Substance: COCAINE
     Indication: PRODUCT USED FOR UNKNOWN INDICATION
     Dosage: 317 NANOGRAM PER MILLLIITER (FEMORAL BLOOD)
  3. AMITRIPTYLINE [Suspect]
     Active Substance: AMITRIPTYLINE
     Indication: PRODUCT USED FOR UNKNOWN INDICATION
     Dosage: 1859 NANOGRAM PER MILLLIITER (FEMORAL BLOOD)
  4. DIHYDROCODEINE [Suspect]
     Active Substance: DIHYDROCODEINE
     Dosage: UNK (1681 UG/ML FEMORAL BLOOD CONCENTRATION)
  5. BENZOYLECGONINE [Suspect]
     Active Substance: BENZOYLECGONINE
     Indication: PRODUCT USED FOR UNKNOWN INDICATION
     Dosage: 5135 NANOGRAM PER MILLLIITER
  6. COCAINE [Suspect]
     Active Substance: COCAINE
     Dosage: UNK
  7. AMITRIPTYLINE [Suspect]
     Active Substance: AMITRIPTYLINE
     Dosage: 1859 FEMORAL BLOOD CONCENTRATION
  8. AMITRIPTYLINE [Suspect]
     Active Substance: AMITRIPTYLINE
     Dosage: UNK
  9. DIHYDROCODEINE [Suspect]
     Active Substance: DIHYDROCODEINE
     Dosage: UNK
  10. NORTRIPTYLINE [Suspect]
     Active Substance: NORTRIPTYLINE
     Dosage: UNK (582 UG/ML FEMORAL BLOOD)
  11. ETIZOLAM [Suspect]
     Active Substance: ETIZOLAM
     Dosage: UNK
  12. BENZOYLECGONINE [Suspect]
     Active Substance: BENZOYLECGONINE
     Dosage: UNK (5135 UG/ML FEMORAL BLOOD CONCENTRATION)
  13. NORTRIPTYLINE [Suspect]
     Active Substance: NORTRIPTYLINE
     Indication: PRODUCT USED FOR UNKNOWN INDICATION
     Dosage: 582 NANOGRAM PER MILLLIITER (FEMORAL BLOOD)
  14. BENZOYLECGONINE [Suspect]
     Active Substance: BENZOYLECGONINE
     Dosage: UNK
  15. PREGABALIN. [Suspect]
     Active Substance: PREGABALIN
     Dosage: UNK (22300 UG/ML FEMORAL BLOOD CONCENTRATION)
  16. PREGABALIN. [Suspect]
     Active Substance: PREGABALIN
     Dosage: UNK
  17. ETIZOLAM [Suspect]
     Active Substance: ETIZOLAM
     Indication: PRODUCT USED FOR UNKNOWN INDICATION
     Dosage: 7 NANOGRAM PER MILLLIITER (FEMORAL BLOOD)
  18. DIHYDROCODEINE [Suspect]
     Active Substance: DIHYDROCODEINE
     Indication: PRODUCT USED FOR UNKNOWN INDICATION
     Dosage: 1681 NANOGRAM PER MILLLIITER (FEMORAL BLOOD)
  19. NORTRIPTYLINE [Suspect]
     Active Substance: NORTRIPTYLINE
     Dosage: UNK
  20. COCAINE [Suspect]
     Active Substance: COCAINE
     Dosage: UNK (317 UG/ML FEMORAL BLOOD CONCENTRATION)
  21. ETIZOLAM [Suspect]
     Active Substance: ETIZOLAM
     Dosage: UNK (7UG/ML FEMORA BLOOD CONCENTRATION)

REACTIONS (2)
  - Drug abuse [Unknown]
  - Toxicity to various agents [Fatal]
